FAERS Safety Report 5358406-2 (Version None)
Quarter: 2007Q2

REPORT INFORMATION
  Report Type: 
  Country: None (occurrence: None)
  Receive Date: 20070615
  Receipt Date: 20070608
  Transmission Date: 20071010
  Serious: Yes (Other)
  Sender: FDA-Public Use
  Company Number: PHBS2007JP08429

PATIENT
  Age: 81 Year
  Sex: Female
  Weight: 62 kg

DRUGS (2)
  1. DIOVAN [Suspect]
     Indication: HYPERTENSION
     Dosage: 40 MG/DAY
     Route: 048
     Dates: start: 20050623, end: 20050625
  2. SOLANAX [Concomitant]
     Indication: ANXIETY DISORDER
     Dosage: 0.2 MG, UNK
     Route: 048
     Dates: start: 20050428

REACTIONS (1)
  - SYNCOPE [None]
